FAERS Safety Report 21962389 (Version 2)
Quarter: 2024Q1

REPORT INFORMATION
  Report Type: Report from Study
  Country: US (occurrence: US)
  Receive Date: 20230207
  Receipt Date: 20240207
  Transmission Date: 20240410
  Serious: No
  Sender: FDA-Public Use
  Company Number: US-ORG100014127-2022000747

PATIENT
  Age: 25 Year
  Sex: Female

DRUGS (9)
  1. LYSODREN [Suspect]
     Active Substance: MITOTANE
     Indication: Adrenal gland cancer
     Dosage: UPTITRATED TO 03 TABLETS TWICE DAILY
     Route: 048
     Dates: start: 20220623
  2. LYSODREN [Suspect]
     Active Substance: MITOTANE
     Indication: Adrenal gland cancer
     Dosage: 06 TABLETS TWICE DAILY
     Route: 048
  3. HYDROCORT TAB 10MG [Concomitant]
     Indication: Product used for unknown indication
  4. Isturisa 1mg TAB [Concomitant]
     Indication: Product used for unknown indication
  5. Lasix 200 mg TAB [Concomitant]
     Indication: Product used for unknown indication
  6. Potassium chloride 20meq TAB ER [Concomitant]
     Indication: Product used for unknown indication
  7. Pravastatin 10 mg TAB [Concomitant]
     Indication: Product used for unknown indication
  8. Propranolol 60 mg ER CAP [Concomitant]
     Indication: Product used for unknown indication
  9. Spironolactone 25 mg TAB [Concomitant]
     Indication: Product used for unknown indication

REACTIONS (2)
  - Joint stiffness [Not Recovered/Not Resolved]
  - Fatigue [Not Recovered/Not Resolved]

NARRATIVE: CASE EVENT DATE: 20220701
